FAERS Safety Report 7691807-6 (Version None)
Quarter: 2011Q3

REPORT INFORMATION
  Report Type: 
  Country: None (occurrence: None)
  Receive Date: 20110818
  Receipt Date: 20110808
  Transmission Date: 20111222
  Serious: Yes (Hospitalization, Other)
  Sender: FDA-Public Use
  Company Number: BE-ABBOTT-11P-013-0713240-00

PATIENT
  Sex: Male
  Weight: 65 kg

DRUGS (9)
  1. HUMIRA [Suspect]
     Indication: CROHN'S DISEASE
     Dosage: 160 MG (BASELINE)
     Route: 058
     Dates: start: 20080603, end: 20080603
  2. HUMIRA [Suspect]
     Dosage: 80 MG (WEEK 2)
     Route: 058
  3. PREDNISONE [Concomitant]
     Indication: CROHN'S DISEASE
  4. METHOTREXATE [Concomitant]
     Indication: CROHN'S DISEASE
  5. ENTOCORT EC [Concomitant]
     Indication: CROHN'S DISEASE
     Dates: start: 20091214, end: 20110301
  6. HUMIRA [Suspect]
     Route: 058
     Dates: start: 20110328
  7. AZATHIOPRINE [Concomitant]
     Indication: CROHN'S DISEASE
  8. HUMIRA [Suspect]
     Dates: end: 20110314
  9. ATACAND [Concomitant]
     Indication: HYPERTENSION

REACTIONS (1)
  - COLONIC STENOSIS [None]
